FAERS Safety Report 17868701 (Version 1)
Quarter: 2020Q2

REPORT INFORMATION
  Report Type: Spontaneous
  Country: US (occurrence: US)
  Receive Date: 20200606
  Receipt Date: 20200606
  Transmission Date: 20200714
  Serious: Yes (Life-Threatening, Other)
  Sender: FDA-Public Use
  Company Number: None

PATIENT
  Age: 35 Year
  Sex: Male
  Weight: 75.3 kg

DRUGS (7)
  1. HUMALOG [Concomitant]
     Active Substance: INSULIN LISPRO
     Dates: start: 20200529, end: 20200601
  2. ATORVASTATIN 40 MG  DAILY AT 6PM [Concomitant]
     Dates: start: 20200528, end: 20200601
  3. METHYLPREDNISOLONE 60 MG IV Q6H [Concomitant]
     Dates: start: 20200528, end: 20200531
  4. ENOXAPARIN 40 MG SQ Q12H [Concomitant]
     Dates: start: 20200528, end: 20200601
  5. REMDESIVIR. [Suspect]
     Active Substance: REMDESIVIR
     Indication: PRODUCT USED FOR UNKNOWN INDICATION
     Route: 041
     Dates: start: 20200528, end: 20200531
  6. CHOLECALCIFEROL 2000 UNITS DAILY [Concomitant]
     Dates: start: 20200528, end: 20200601
  7. MELATONIN 6 MG HS [Concomitant]
     Dates: start: 20200528, end: 20200601

REACTIONS (1)
  - Alanine aminotransferase increased [None]

NARRATIVE: CASE EVENT DATE: 20200531
